FAERS Safety Report 8956657 (Version 3)
Quarter: 2013Q1

REPORT INFORMATION
  Report Type: Spontaneous
  Country: JP (occurrence: JP)
  Receive Date: 20121210
  Receipt Date: 20130104
  Transmission Date: 20140127
  Serious: Yes (Hospitalization)
  Sender: FDA-Public Use
  Company Number: JP-JNJFOC-20121200420

PATIENT
  Age: 81 Year
  Sex: Female
  Weight: 50 kg

DRUGS (12)
  1. SIMPONI [Suspect]
     Indication: RHEUMATOID ARTHRITIS
     Route: 058
     Dates: start: 20120615, end: 20121010
  2. PREDONINE [Suspect]
     Indication: RHEUMATOID ARTHRITIS
     Route: 048
  3. BAYASPIRIN [Concomitant]
     Indication: CEREBRAL INFARCTION
     Route: 048
  4. ONEALFA [Concomitant]
     Indication: OSTEOPOROSIS
     Route: 048
  5. BENET [Concomitant]
     Indication: OSTEOPOROSIS
     Route: 048
  6. MYSLEE [Concomitant]
     Indication: INSOMNIA
     Route: 048
  7. KIPRES [Concomitant]
     Indication: ASTHMA
     Route: 048
  8. PULMICORT RESPULES [Concomitant]
     Indication: ASTHMA
     Route: 055
  9. SEREVENT (SALMETEROL XINAFOATE) [Concomitant]
     Indication: ASTHMA
     Route: 055
  10. SELBEX [Concomitant]
     Indication: GASTRITIS
     Route: 048
  11. SPIRIVA [Concomitant]
     Indication: ASTHMA
     Route: 055
  12. SPIRIVA [Concomitant]
     Indication: ASTHMA
     Route: 055

REACTIONS (1)
  - Herpes zoster [Recovered/Resolved]
